FAERS Safety Report 8043115 (Version 8)
Quarter: 2013Q2

REPORT INFORMATION
  Report Type: Spontaneous
  Country: GB (occurrence: GB)
  Receive Date: 20110719
  Receipt Date: 20130507
  Transmission Date: 20140414
  Serious: Yes (Other)
  Sender: FDA-Public Use
  Company Number: GB-NOVOPROD-331550

PATIENT
  Age: 62 Year
  Sex: Male
  Weight: 110.7 kg

DRUGS (3)
  1. VICTOZA INJECTION [Suspect]
     Indication: TYPE 2 DIABETES MELLITUS
     Dosage: 1.2 MG, QD
     Dates: start: 20101026, end: 20110519
  2. VICTOZA INJECTION [Suspect]
     Dosage: UNK
     Dates: start: 2012
  3. METFORMIN [Concomitant]

REACTIONS (1)
  - Portal hypertensive gastropathy [Not Recovered/Not Resolved]
